FAERS Safety Report 9333471 (Version 2)
Quarter: 2013Q3

REPORT INFORMATION
  Report Type: Spontaneous
  Country: US (occurrence: US)
  Receive Date: 20130606
  Receipt Date: 20130705
  Transmission Date: 20140515
  Serious: No
  Sender: FDA-Public Use
  Company Number: US-009507513-1306USA000339

PATIENT
  Sex: Female

DRUGS (5)
  1. DULERA [Suspect]
     Indication: CHRONIC OBSTRUCTIVE PULMONARY DISEASE
     Dosage: ONE PUFF 4 TIMES A DAY
     Route: 048
     Dates: start: 201301
  2. LISINOPRIL [Concomitant]
  3. SIMVASTATIN [Concomitant]
  4. CALCIUM (UNSPECIFIED) [Concomitant]
  5. VITAMIN B (UNSPECIFIED) [Concomitant]

REACTIONS (1)
  - No adverse event [Unknown]
